FAERS Safety Report 11868745 (Version 1)
Quarter: 2015Q4

REPORT INFORMATION
  Report Type: Spontaneous
  Country: US (occurrence: US)
  Receive Date: 20151225
  Receipt Date: 20151225
  Transmission Date: 20160305
  Serious: No
  Sender: FDA-Public Use
  Company Number: PHEH2015US026276

PATIENT
  Sex: Female

DRUGS (1)
  1. GLEEVEC [Suspect]
     Active Substance: IMATINIB MESYLATE
     Indication: CHRONIC MYELOID LEUKAEMIA
     Route: 065

REACTIONS (27)
  - Vomiting [Unknown]
  - Hepatic steatosis [Unknown]
  - Muscular weakness [Unknown]
  - Diarrhoea [Unknown]
  - Hyperhidrosis [Unknown]
  - Alopecia [Unknown]
  - Fatigue [Unknown]
  - Constipation [Unknown]
  - Pruritus [Unknown]
  - Dizziness [Unknown]
  - Oedema [Unknown]
  - Pallor [Unknown]
  - Asthenopia [Unknown]
  - Decreased appetite [Unknown]
  - Confusional state [Unknown]
  - Muscle spasms [Unknown]
  - Loss of libido [Unknown]
  - Rash [Unknown]
  - Cognitive disorder [Unknown]
  - Vision blurred [Unknown]
  - Bone pain [Unknown]
  - Arthralgia [Unknown]
  - Anxiety [Unknown]
  - Weight increased [Unknown]
  - Nausea [Unknown]
  - Insomnia [Unknown]
  - Paraesthesia [Unknown]
